FAERS Safety Report 25995157 (Version 1)
Quarter: 2025Q4

REPORT INFORMATION
  Report Type: Spontaneous
  Country: CN (occurrence: CN)
  Receive Date: 20251104
  Receipt Date: 20251104
  Transmission Date: 20260118
  Serious: Yes (Hospitalization)
  Sender: ALEXION PHARMACEUTICALS
  Company Number: CN-ASTRAZENECA-202510CHN027097CN

PATIENT
  Age: 53 Year
  Sex: Male
  Weight: 60 kg

DRUGS (3)
  1. TAGRISSO [Suspect]
     Active Substance: OSIMERTINIB
     Indication: Chemotherapy
     Dosage: 80.000000 MILLIGRAM,1 TIMES 1 DAY
     Dates: start: 20251013, end: 20251013
  2. CARBOPLATIN [Suspect]
     Active Substance: CARBOPLATIN
     Indication: Chemotherapy
     Dosage: 0.450000 GRAM,1 TIMES 1 DAY
  3. PEMETREXED DISODIUM [Suspect]
     Active Substance: PEMETREXED DISODIUM
     Indication: Chemotherapy
     Dosage: 0.750000 GRAM,1 TIMES 1 DAY

REACTIONS (2)
  - Intestinal obstruction [Recovering/Resolving]
  - Myelosuppression [Recovering/Resolving]

NARRATIVE: CASE EVENT DATE: 20251015
